FAERS Safety Report 13927413 (Version 1)
Quarter: 2017Q3

REPORT INFORMATION
  Report Type: Spontaneous
  Country: AU (occurrence: AU)
  Receive Date: 20170901
  Receipt Date: 20170901
  Transmission Date: 20171127
  Serious: Yes (Other)
  Sender: FDA-Public Use
  Company Number: AU-SUNOVION-2017DSP001617

PATIENT
  Age: 26 Year
  Sex: Female

DRUGS (1)
  1. LATUDA [Suspect]
     Active Substance: LURASIDONE HYDROCHLORIDE
     Indication: SCHIZOAFFECTIVE DISORDER
     Dosage: 40 MG, QD
     Route: 048
     Dates: start: 201612

REACTIONS (3)
  - Hallucination, auditory [Unknown]
  - Off label use [Unknown]
  - Gastrectomy [Unknown]

NARRATIVE: CASE EVENT DATE: 2017
